FAERS Safety Report 17168400 (Version 4)
Quarter: 2021Q1

REPORT INFORMATION
  Report Type: Other
  Country: FR (occurrence: FR)
  Receive Date: 20191218
  Receipt Date: 20210207
  Transmission Date: 20210419
  Serious: Yes (Hospitalization, Other)
  Sender: FDA-Public Use
  Company Number: FR-ROCHE-2496749

PATIENT
  Age: 76 Year
  Sex: Male
  Weight: 75 kg

DRUGS (40)
  1. ADOPORT [Suspect]
     Active Substance: TACROLIMUS
     Indication: RENAL TRANSPLANT
     Route: 048
     Dates: start: 20190601
  2. ADOPORT [Suspect]
     Active Substance: TACROLIMUS
     Route: 048
     Dates: start: 20190402, end: 20190406
  3. ADOPORT [Suspect]
     Active Substance: TACROLIMUS
     Route: 048
     Dates: start: 20190330, end: 20190401
  4. NEFOPAM [Concomitant]
     Active Substance: NEFOPAM
     Indication: PRODUCT USED FOR UNKNOWN INDICATION
     Dosage: UNK
     Route: 065
     Dates: start: 20190327, end: 20190407
  5. ADOPORT [Suspect]
     Active Substance: TACROLIMUS
     Route: 048
     Dates: start: 20190601, end: 20190830
  6. ADOPORT [Suspect]
     Active Substance: TACROLIMUS
     Route: 048
     Dates: start: 20190321
  7. SOLU?MEDROL [Suspect]
     Active Substance: METHYLPREDNISOLONE SODIUM SUCCINATE
     Route: 065
     Dates: start: 20190322, end: 20190322
  8. OXYBUTYNINE [Concomitant]
     Active Substance: OXYBUTYNIN CHLORIDE
     Indication: PRODUCT USED FOR UNKNOWN INDICATION
     Route: 065
     Dates: start: 20190321, end: 20190330
  9. PHLOROGLUCINOL [Concomitant]
     Active Substance: PHLOROGLUCINOL
     Indication: PRODUCT USED FOR UNKNOWN INDICATION
     Dosage: UNK
     Route: 065
     Dates: start: 20190321, end: 20190326
  10. ADOPORT [Suspect]
     Active Substance: TACROLIMUS
     Route: 048
     Dates: start: 20190504, end: 20190601
  11. ADOPORT [Suspect]
     Active Substance: TACROLIMUS
     Route: 048
     Dates: start: 20190321, end: 20190322
  12. ADOPORT [Suspect]
     Active Substance: TACROLIMUS
     Route: 048
     Dates: start: 20190830
  13. ADOPORT [Suspect]
     Active Substance: TACROLIMUS
     Route: 048
     Dates: start: 20190406, end: 20190409
  14. ADOPORT [Suspect]
     Active Substance: TACROLIMUS
     Route: 048
     Dates: start: 20190324, end: 20190327
  15. ADOPORT [Suspect]
     Active Substance: TACROLIMUS
     Route: 048
     Dates: start: 20190322, end: 20190324
  16. MYFORTIC [Suspect]
     Active Substance: MYCOPHENOLATE SODIUM
     Indication: PROPHYLAXIS AGAINST TRANSPLANT REJECTION
     Dosage: UNK
     Route: 065
     Dates: start: 20190321, end: 20190406
  17. MYFORTIC [Suspect]
     Active Substance: MYCOPHENOLATE SODIUM
     Dosage: 1080 OT
     Route: 065
     Dates: start: 20190407
  18. LANTUS [Concomitant]
     Active Substance: INSULIN GLARGINE
     Indication: PRODUCT USED FOR UNKNOWN INDICATION
     Dosage: UNK
     Route: 065
     Dates: start: 20190326
  19. PARACETAMOL [Concomitant]
     Active Substance: ACETAMINOPHEN
     Indication: PRODUCT USED FOR UNKNOWN INDICATION
     Dosage: UNK
     Route: 065
     Dates: start: 20190321, end: 20190402
  20. ADOPORT [Suspect]
     Active Substance: TACROLIMUS
     Route: 048
     Dates: start: 20190409, end: 20190425
  21. SOLU?MEDROL [Suspect]
     Active Substance: METHYLPREDNISOLONE SODIUM SUCCINATE
     Indication: PROPHYLAXIS
     Route: 065
     Dates: start: 20190321, end: 20190321
  22. TRAMADOL. [Concomitant]
     Active Substance: TRAMADOL
     Indication: PRODUCT USED FOR UNKNOWN INDICATION
     Dosage: UNK
     Route: 065
     Dates: start: 20190321, end: 20190321
  23. PRAVASTATINE [Concomitant]
     Active Substance: PRAVASTATIN
     Indication: PRODUCT USED FOR UNKNOWN INDICATION
     Dosage: UNK
     Route: 065
     Dates: start: 20190322, end: 20190408
  24. VORICONAZOLE. [Concomitant]
     Active Substance: VORICONAZOLE
     Indication: PRODUCT USED FOR UNKNOWN INDICATION
     Dosage: UNK
     Route: 065
     Dates: start: 20191028
  25. ADOPORT [Suspect]
     Active Substance: TACROLIMUS
     Route: 048
     Dates: start: 20190321
  26. CORTANCYL [Concomitant]
     Active Substance: PREDNISONE
     Indication: PRODUCT USED FOR UNKNOWN INDICATION
     Dosage: UNK
     Route: 065
     Dates: start: 20190323
  27. ADOPORT [Suspect]
     Active Substance: TACROLIMUS
     Route: 048
     Dates: start: 20190321
  28. SULFAMETHOXAZOLE/TRIMETHOPRIM [Suspect]
     Active Substance: SULFAMETHOXAZOLE\TRIMETHOPRIM
     Indication: PNEUMOCYSTIS JIROVECII PNEUMONIA
     Dosage: 400/800MG PER DAY
     Route: 065
     Dates: start: 20190328, end: 20190705
  29. VALGANCICLOVIR. [Suspect]
     Active Substance: VALGANCICLOVIR
     Indication: PROPHYLAXIS
     Route: 065
     Dates: start: 20190322, end: 20190705
  30. NOVORAPID [Concomitant]
     Active Substance: INSULIN ASPART
     Indication: PRODUCT USED FOR UNKNOWN INDICATION
     Dosage: UNK
     Route: 065
     Dates: start: 20190322, end: 20190424
  31. CALCIPARINE [Concomitant]
     Active Substance: HEPARIN CALCIUM
     Indication: PRODUCT USED FOR UNKNOWN INDICATION
     Dosage: UNK
     Route: 065
     Dates: start: 20190325, end: 20190409
  32. BISOPROLOL [Concomitant]
     Active Substance: BISOPROLOL
     Indication: PRODUCT USED FOR UNKNOWN INDICATION
     Dosage: UNK
     Route: 065
     Dates: start: 20190322
  33. ADOPORT [Suspect]
     Active Substance: TACROLIMUS
     Route: 048
     Dates: start: 20190321
  34. ADOPORT [Suspect]
     Active Substance: TACROLIMUS
     Route: 048
     Dates: start: 20190425, end: 20190504
  35. ADOPORT [Suspect]
     Active Substance: TACROLIMUS
     Route: 048
     Dates: start: 20190401, end: 20190402
  36. ARANESP [Concomitant]
     Active Substance: DARBEPOETIN ALFA
     Indication: PRODUCT USED FOR UNKNOWN INDICATION
     Dosage: UNK
     Route: 065
     Dates: start: 20190322
  37. ADOPORT [Suspect]
     Active Substance: TACROLIMUS
     Route: 048
     Dates: start: 20190327, end: 20190328
  38. ADOPORT [Suspect]
     Active Substance: TACROLIMUS
     Route: 048
     Dates: start: 20190321
  39. ADOPORT [Suspect]
     Active Substance: TACROLIMUS
     Route: 048
     Dates: start: 20190328, end: 20190330
  40. LANSOPRAZOLE. [Concomitant]
     Active Substance: LANSOPRAZOLE
     Indication: PRODUCT USED FOR UNKNOWN INDICATION
     Dosage: UNK
     Route: 065
     Dates: start: 20190322

REACTIONS (16)
  - Diarrhoea [Recovered/Resolved]
  - Localised oedema [Recovered/Resolved]
  - Atrial fibrillation [Not Recovered/Not Resolved]
  - Bronchopulmonary aspergillosis [Recovering/Resolving]
  - Renal artery stenosis [Recovered/Resolved]
  - Escherichia urinary tract infection [Recovered/Resolved]
  - Chest pain [Recovered/Resolved]
  - Oedema peripheral [Recovered/Resolved]
  - Acute kidney injury [Recovered/Resolved]
  - Hypertension [Recovering/Resolving]
  - Metabolic acidosis [Not Recovered/Not Resolved]
  - Thrombocytopenia [Recovered/Resolved]
  - Hyperglycaemia [Recovering/Resolving]
  - Neutropenia [Recovering/Resolving]
  - Abdominal pain [Recovered/Resolved]
  - Cough [Recovered/Resolved]

NARRATIVE: CASE EVENT DATE: 20190321
